FAERS Safety Report 24535766 (Version 1)
Quarter: 2024Q4

REPORT INFORMATION
  Report Type: Spontaneous
  Country: US (occurrence: None)
  Receive Date: 20241022
  Receipt Date: 20241022
  Transmission Date: 20250115
  Serious: Yes (unspecified)
  Sender: Public
  Company Number: None

PATIENT
  Age: 75 Year
  Sex: Male
  Weight: 77.2 kg

DRUGS (2)
  1. YESCARTA [Suspect]
     Active Substance: AXICABTAGENE CILOLEUCEL
     Indication: Diffuse large B-cell lymphoma
     Dosage: OTHER FREQUENCY : ONCE;?
     Route: 042
  2. EPINEPHRINE [Suspect]
     Active Substance: EPINEPHRINE

REACTIONS (8)
  - Chest discomfort [None]
  - Infusion related reaction [None]
  - Hypoxia [None]
  - Pallor [None]
  - Tachycardia [None]
  - Hypertension [None]
  - Extrasystoles [None]
  - Blood potassium decreased [None]

NARRATIVE: CASE EVENT DATE: 20240917
